FAERS Safety Report 7170321-0 (Version None)
Quarter: 2010Q4

REPORT INFORMATION
  Report Type: 
  Country: None (occurrence: None)
  Receive Date: 20101217
  Receipt Date: 20101210
  Transmission Date: 20110411
  Serious: Yes (Other)
  Sender: FDA-Public Use
  Company Number: US-PFIZER INC-2010171256

PATIENT
  Sex: Male

DRUGS (3)
  1. CELEBREX [Suspect]
     Indication: ARTHRITIS
     Dates: start: 20100101
  2. IBUPROFEN [Suspect]
     Dates: end: 20090101
  3. ASPIRIN [Concomitant]

REACTIONS (1)
  - GASTROINTESTINAL HAEMORRHAGE [None]
